FAERS Safety Report 8546083-9 (Version None)
Quarter: 2012Q3

REPORT INFORMATION
  Report Type: 
  Country: None (occurrence: None)
  Receive Date: 20120727
  Receipt Date: 20111208
  Transmission Date: 20120928
  Serious: No
  Sender: FDA-Public Use
  Company Number: US-ASTRAZENECA-2011SE74375

PATIENT
  Age: 24 Year
  Sex: Female

DRUGS (3)
  1. SEROQUEL XR [Suspect]
     Route: 048
  2. SEROQUEL XR [Suspect]
     Route: 048
  3. SEROQUEL XR [Suspect]
     Route: 048

REACTIONS (5)
  - DRUG DOSE OMISSION [None]
  - NAUSEA [None]
  - VOMITING [None]
  - TREMOR [None]
  - DRUG WITHDRAWAL SYNDROME [None]
